FAERS Safety Report 4798086-8 (Version None)
Quarter: 2005Q4

REPORT INFORMATION
  Report Type: 
  Country: None (occurrence: None)
  Receive Date: 20051006
  Receipt Date: 20051006
  Transmission Date: 20060501
  Serious: Yes (Hospitalization)
  Sender: FDA-Public Use
  Company Number: None

PATIENT
  Age: 74 Year
  Sex: Female

DRUGS (1)
  1. THEOPHYLLINE-SR [Suspect]
     Indication: ASTHMA
     Dosage: 400MG PO BID  YEARS
     Route: 048

REACTIONS (6)
  - ANTASTHMATIC DRUG LEVEL ABOVE THERAPEUTIC [None]
  - CARDIAC MURMUR [None]
  - EYE PAIN [None]
  - HEADACHE [None]
  - HEART RATE INCREASED [None]
  - TREMOR [None]
